FAERS Safety Report 21981312 (Version 1)
Quarter: 2023Q1

REPORT INFORMATION
  Report Type: Spontaneous
  Country: IT (occurrence: IT)
  Receive Date: 20230211
  Receipt Date: 20230211
  Transmission Date: 20230418
  Serious: Yes (Other)
  Sender: FDA-Public Use
  Company Number: IT-AMGEN-ITASP2023022012

PATIENT

DRUGS (4)
  1. ADALIMUMAB [Suspect]
     Active Substance: ADALIMUMAB
     Indication: Juvenile idiopathic arthritis
     Dosage: UNK
     Route: 065
  2. ADALIMUMAB [Suspect]
     Active Substance: ADALIMUMAB
     Indication: Uveitis
  3. DEXAMETHASONE [Concomitant]
     Active Substance: DEXAMETHASONE
     Indication: Uveitis
  4. CYCLOPENTOLATE HYDROCHLORIDE [Concomitant]
     Active Substance: CYCLOPENTOLATE HYDROCHLORIDE
     Indication: Uveitis
     Route: 065

REACTIONS (11)
  - Iris adhesions [Unknown]
  - Hypotony of eye [Unknown]
  - Glaucoma [Unknown]
  - Cystoid macular oedema [Unknown]
  - Retinal detachment [Unknown]
  - Blindness [Unknown]
  - Cataract [Unknown]
  - Intraocular pressure increased [Unknown]
  - Keratopathy [Unknown]
  - Papillitis [Unknown]
  - Epiretinal membrane [Unknown]
